FAERS Safety Report 7328579-0 (Version None)
Quarter: 2011Q1

REPORT INFORMATION
  Report Type: 
  Country: None (occurrence: None)
  Receive Date: 20110225
  Receipt Date: 20110225
  Transmission Date: 20110831
  Serious: Yes (Other)
  Sender: FDA-Public Use
  Company Number: None

PATIENT
  Age: 17 Year
  Sex: Male
  Weight: 72.5755 kg

DRUGS (7)
  1. CLARAVIS [Suspect]
     Indication: ACNE
  2. FEXOFENADINE [Concomitant]
  3. CERAVE CREAM MOISTURIZER [Concomitant]
  4. MULTIVITAMIN WITH MINERALS [Concomitant]
  5. BENADRYL [Concomitant]
  6. DOXYCLYCLINE HYCLATE [Concomitant]
  7. SALICYCLIC ACID FACE AND BODY WASH [Concomitant]

REACTIONS (3)
  - ANXIETY [None]
  - DEPRESSED MOOD [None]
  - OBSESSIVE-COMPULSIVE DISORDER [None]
